FAERS Safety Report 15398312 (Version 1)
Quarter: 2018Q3

REPORT INFORMATION
  Report Type: Spontaneous
  Country: US (occurrence: US)
  Receive Date: 20180918
  Receipt Date: 20180918
  Transmission Date: 20181010
  Serious: Yes (Hospitalization, Other)
  Sender: FDA-Public Use
  Company Number: US-ELI_LILLY_AND_COMPANY-US201809003866

PATIENT
  Sex: Female

DRUGS (2)
  1. HUMALOG [Suspect]
     Active Substance: INSULIN LISPRO
     Indication: PRODUCT USED FOR UNKNOWN INDICATION
     Dosage: UNK, UNKNOWN
     Route: 058
  2. TOUJEO [Concomitant]
     Active Substance: INSULIN GLARGINE
     Indication: DIABETES MELLITUS

REACTIONS (11)
  - Wound infection [Recovering/Resolving]
  - Post procedural infection [Recovering/Resolving]
  - Constipation [Recovering/Resolving]
  - Gait inability [Not Recovered/Not Resolved]
  - Fall [Recovered/Resolved]
  - Blindness [Not Recovered/Not Resolved]
  - Blood glucose increased [Recovering/Resolving]
  - Wound infection [Recovering/Resolving]
  - Urinary tract infection [Recovering/Resolving]
  - Memory impairment [Unknown]
  - Intentional product misuse [Unknown]

NARRATIVE: CASE EVENT DATE: 1990
